FAERS Safety Report 18607814 (Version 2)
Quarter: 2021Q1

REPORT INFORMATION
  Report Type: Spontaneous
  Country: IN (occurrence: IN)
  Receive Date: 20201211
  Receipt Date: 20210121
  Transmission Date: 20210419
  Serious: Yes (Other)
  Sender: FDA-Public Use
  Company Number: IN-BAUSCH-BL-2020-035254

PATIENT
  Age: 52 Year
  Sex: Male

DRUGS (5)
  1. COLISTIN [Suspect]
     Active Substance: COLISTIN
     Indication: PSEUDOMONAS INFECTION
     Dosage: 4.5 MILLION (UNITS NOT SPECIFIED)
     Route: 042
  2. GENTAMICIN. [Suspect]
     Active Substance: GENTAMICIN
     Route: 042
  3. CEFTAZIDIME. [Concomitant]
     Active Substance: CEFTAZIDIME
     Indication: PSEUDOMONAS INFECTION
  4. COLISTIN [Suspect]
     Active Substance: COLISTIN
     Dosage: INTRAVENTRICULAR ROUTE, STOPPED
     Route: 020
  5. GENTAMICIN. [Suspect]
     Active Substance: GENTAMICIN
     Indication: PSEUDOMONAS INFECTION
     Dosage: INTRAVENTRICULAR ROUTE
     Route: 020

REACTIONS (1)
  - Intraventricular haemorrhage [Unknown]
